FAERS Safety Report 6283189-1 (Version None)
Quarter: 2009Q3

REPORT INFORMATION
  Report Type: 
  Country: None (occurrence: None)
  Receive Date: 20090724
  Receipt Date: 20090716
  Transmission Date: 20100115
  Serious: Yes (Hospitalization)
  Sender: FDA-Public Use
  Company Number: B0585230A

PATIENT
  Sex: Male

DRUGS (2)
  1. AUGMENTIN [Suspect]
     Indication: PROPHYLAXIS
     Dosage: 1G TWICE PER DAY
     Route: 048
     Dates: start: 20090615, end: 20090625
  2. SULFADIAZINE [Suspect]
     Route: 061
     Dates: start: 20090615, end: 20090625

REACTIONS (1)
  - SKIN REACTION [None]
